FAERS Safety Report 15260784 (Version 1)
Quarter: 2018Q4

REPORT INFORMATION
  Report Type: Other
  Country: AU (occurrence: AU)
  Receive Date: 20180809
  Receipt Date: 20180809
  Transmission Date: 20190204
  Serious: Yes (Hospitalization, Other)
  Sender: FDA-Public Use
  Company Number: AU-ALCAMI_CORPORATION-USA-POI0581201800007

PATIENT
  Age: 35 Year
  Sex: Female

DRUGS (8)
  1. LACTULOSE. [Concomitant]
     Active Substance: LACTULOSE
  2. ASPIRIN. [Concomitant]
     Active Substance: ASPIRIN
  3. FOLIC ACID. [Concomitant]
     Active Substance: FOLIC ACID
  4. AZASAN [Suspect]
     Active Substance: AZATHIOPRINE
     Indication: CROHN^S DISEASE
  5. AZASAN [Suspect]
     Active Substance: AZATHIOPRINE
     Dosage: 2 MG PER KG
  6. CHOLECALCIFEROL [Concomitant]
     Active Substance: CHOLECALCIFEROL
  7. PREDNISOLONE. [Concomitant]
     Active Substance: PREDNISOLONE
     Indication: ANAL STENOSIS
     Route: 054
  8. RITUXIMAB CYCLOPHOSPHAMIDE DOXORUBICIN VINCRISTINE PREDNISOLONE [Concomitant]

REACTIONS (3)
  - Placental insufficiency [Recovered/Resolved]
  - Diffuse large B-cell lymphoma [Recovering/Resolving]
  - Foetal death [Recovered/Resolved]

NARRATIVE: CASE EVENT DATE: 201601
